FAERS Safety Report 25841666 (Version 1)
Quarter: 2025Q3

REPORT INFORMATION
  Report Type: Spontaneous
  Country: EU (occurrence: EU)
  Receive Date: 20250924
  Receipt Date: 20250924
  Transmission Date: 20251020
  Serious: Yes (Death, Other)
  Sender: ORGANON
  Company Number: EU-009507513-1707ESP012412

PATIENT
  Age: 36 Year
  Sex: Male

DRUGS (9)
  1. MIRTAZAPINE [Suspect]
     Active Substance: MIRTAZAPINE
     Route: 048
  2. ALCOHOL [Suspect]
     Active Substance: ALCOHOL
  3. COCAINE [Suspect]
     Active Substance: COCAINE
  4. MORPHINE [Suspect]
     Active Substance: MORPHINE
  5. PREGABALIN [Suspect]
     Active Substance: PREGABALIN
  6. ALPRAZOLAM [Suspect]
     Active Substance: ALPRAZOLAM
  7. CLONAZEPAM [Suspect]
     Active Substance: CLONAZEPAM
  8. LEVOMEPROMAZINE [Suspect]
     Active Substance: LEVOMEPROMAZINE
  9. TRAZODONE HYDROCHLORIDE [Suspect]
     Active Substance: TRAZODONE HYDROCHLORIDE

REACTIONS (1)
  - Acute pulmonary oedema [Fatal]

NARRATIVE: CASE EVENT DATE: 20150101
